FAERS Safety Report 18605411 (Version 1)
Quarter: 2020Q4

REPORT INFORMATION
  Report Type: Spontaneous
  Country: FR (occurrence: FR)
  Receive Date: 20201211
  Receipt Date: 20201211
  Transmission Date: 20210114
  Serious: Yes (Death, Hospitalization, Other)
  Sender: FDA-Public Use
  Company Number: FR-CHEPLA-C20203791

PATIENT
  Age: 26 Year
  Sex: Female

DRUGS (7)
  1. VALACICLOVIR [Suspect]
     Active Substance: VALACYCLOVIR HYDROCHLORIDE
     Indication: ANTIVIRAL PROPHYLAXIS
  2. AZATHIOPRINE. [Suspect]
     Active Substance: AZATHIOPRINE
     Indication: ENTEROCOLITIS HAEMORRHAGIC
  3. MESALAZINE [Suspect]
     Active Substance: MESALAMINE
     Indication: COLITIS
  4. CEFOTAXIME [Suspect]
     Active Substance: CEFOTAXIME SODIUM
     Indication: ANTIBIOTIC PROPHYLAXIS
  5. SULFAMETHOXAZOLE AND TRIMETHOPRIM [Suspect]
     Active Substance: SULFAMETHOXAZOLE\TRIMETHOPRIM
     Indication: ANTIBIOTIC PROPHYLAXIS
  6. GANCICLOVIR. [Suspect]
     Active Substance: GANCICLOVIR
     Indication: DISSEMINATED CYTOMEGALOVIRAL INFECTION
  7. FOSCAVIR [Suspect]
     Active Substance: FOSCARNET SODIUM
     Indication: DISSEMINATED CYTOMEGALOVIRAL INFECTION

REACTIONS (5)
  - Hydrocephalus [Unknown]
  - Intracranial pressure increased [Unknown]
  - Exposure during pregnancy [Unknown]
  - Brain oedema [Unknown]
  - Brain death [Fatal]
